FAERS Safety Report 18681030 (Version 1)
Quarter: 2020Q4

REPORT INFORMATION
  Report Type: Spontaneous
  Country: US (occurrence: US)
  Receive Date: 20201229
  Receipt Date: 20201229
  Transmission Date: 20210114
  Serious: Yes (Hospitalization)
  Sender: FDA-Public Use
  Company Number: None

PATIENT
  Age: 71 Year
  Sex: Male
  Weight: 110.4 kg

DRUGS (13)
  1. ALLOPURINOL. [Concomitant]
     Active Substance: ALLOPURINOL
  2. AMOXICILLIN. [Concomitant]
     Active Substance: AMOXICILLIN
  3. CETIRIZINE [Concomitant]
     Active Substance: CETIRIZINE HYDROCHLORIDE
  4. RANOLAZINE. [Concomitant]
     Active Substance: RANOLAZINE
  5. ROSUVASTATIN. [Concomitant]
     Active Substance: ROSUVASTATIN
  6. FLUTICASONE INHALER [Concomitant]
     Active Substance: FLUTICASONE
  7. AMLODIPINE [Concomitant]
     Active Substance: AMLODIPINE BESYLATE
  8. CALCITRIOL. [Concomitant]
     Active Substance: CALCITRIOL
  9. CARVEDILOL. [Concomitant]
     Active Substance: CARVEDILOL
  10. GLIMEPIRIDE. [Concomitant]
     Active Substance: GLIMEPIRIDE
  11. CLOPIDOGREL [Concomitant]
     Active Substance: CLOPIDOGREL BISULFATE
  12. BAMLANIVIMAB FOR EUA [Suspect]
     Active Substance: BAMLANIVIMAB
     Indication: COVID-19
     Dates: start: 20201224, end: 20201224
  13. SITAGLIPTIN [Concomitant]
     Active Substance: SITAGLIPTIN

REACTIONS (5)
  - Swollen tongue [None]
  - Paraesthesia oral [None]
  - Wheezing [None]
  - Breath sounds abnormal [None]
  - Blood pressure systolic increased [None]

NARRATIVE: CASE EVENT DATE: 20201224
